FAERS Safety Report 8308171-1 (Version None)
Quarter: 2012Q2

REPORT INFORMATION
  Report Type: 
  Country: None (occurrence: None)
  Receive Date: 20120424
  Receipt Date: 20120416
  Transmission Date: 20120825
  Serious: Yes (Hospitalization, Other)
  Sender: FDA-Public Use
  Company Number: US-BAYER-2012-019971

PATIENT
  Age: 58 Year
  Sex: Female
  Weight: 74.83 kg

DRUGS (4)
  1. MULTI-VITAMINS [Concomitant]
  2. CREON [Concomitant]
  3. PERCOCET [Concomitant]
  4. YASMIN [Suspect]
     Indication: MENOPAUSAL SYMPTOMS
     Dosage: UNK
     Route: 048
     Dates: start: 20021101, end: 20040601

REACTIONS (5)
  - ISCHAEMIC STROKE [None]
  - PANCREATITIS CHRONIC [None]
  - CHOLECYSTITIS CHRONIC [None]
  - CHOLELITHIASIS [None]
  - PAIN [None]
